FAERS Safety Report 25300768 (Version 2)
Quarter: 2025Q2

REPORT INFORMATION
  Report Type: Spontaneous
  Country: US (occurrence: US)
  Receive Date: 20250512
  Receipt Date: 20250523
  Transmission Date: 20250716
  Serious: No
  Sender: ARDELYX
  Company Number: US-ARDELYX-2025ARDX003168

PATIENT
  Sex: Female

DRUGS (3)
  1. IBSRELA [Suspect]
     Active Substance: TENAPANOR HYDROCHLORIDE
     Indication: Irritable bowel syndrome
     Route: 048
     Dates: start: 20250422
  2. AVASTIN [Concomitant]
     Active Substance: BEVACIZUMAB
     Indication: Product used for unknown indication
     Route: 065
  3. ELAHERE [Concomitant]
     Active Substance: MIRVETUXIMAB SORAVTANSINE-GYNX
     Indication: Product used for unknown indication
     Route: 065

REACTIONS (1)
  - Inhibitory drug interaction [Unknown]
